FAERS Safety Report 7229118-5 (Version None)
Quarter: 2011Q1

REPORT INFORMATION
  Report Type: 
  Country: None (occurrence: None)
  Receive Date: 20110117
  Receipt Date: 20110105
  Transmission Date: 20110831
  Serious: Yes (Hospitalization)
  Sender: FDA-Public Use
  Company Number: US-CELGENEUS-163-21880-11010500

PATIENT
  Sex: Female

DRUGS (14)
  1. DARVOCET [Concomitant]
     Route: 065
  2. ATENOLOL [Concomitant]
     Route: 065
  3. GLUCOVANCE [Concomitant]
     Route: 065
  4. NORVASC [Concomitant]
     Route: 065
  5. ALEVE [Concomitant]
     Route: 065
  6. BUMEX [Concomitant]
     Route: 065
  7. IMODIUM MULTI-SYMPTOM RELIEF [Concomitant]
     Route: 065
  8. PROTONIX [Concomitant]
     Route: 065
  9. KEFLEX [Concomitant]
     Route: 065
  10. PRILOSEC [Concomitant]
     Route: 065
  11. BENADRYL [Concomitant]
     Route: 065
  12. DETROL [Concomitant]
     Route: 065
  13. REVLIMID [Suspect]
     Indication: MYELODYSPLASTIC SYNDROME
     Route: 048
     Dates: start: 20101013
  14. MULTI-VITAMINS [Concomitant]
     Route: 065

REACTIONS (1)
  - INTERVERTEBRAL DISC DEGENERATION [None]
